FAERS Safety Report 6685993-4 (Version None)
Quarter: 2010Q2

REPORT INFORMATION
  Report Type: 
  Country: None (occurrence: None)
  Receive Date: 20100419
  Receipt Date: 20100409
  Transmission Date: 20101027
  Serious: Yes (Hospitalization, Other)
  Sender: FDA-Public Use
  Company Number: PHEH2010US01804

PATIENT
  Sex: Male
  Weight: 87 kg

DRUGS (3)
  1. EXJADE [Suspect]
     Indication: LYMPHOPROLIFERATIVE DISORDER
     Dosage: 1750 MG, QD (DAILY)
     Route: 048
  2. EXJADE [Suspect]
     Indication: BLOOD DISORDER
     Dosage: UNK
     Dates: start: 20091201
  3. EXJADE [Suspect]
     Dosage: 500 MG, BID
     Route: 048

REACTIONS (3)
  - EYE HAEMORRHAGE [None]
  - GASTROINTESTINAL HAEMORRHAGE [None]
  - ULCER [None]
